FAERS Safety Report 9060269 (Version 1)
Quarter: 2013Q1

REPORT INFORMATION
  Report Type: Spontaneous
  Country: FI (occurrence: FI)
  Receive Date: 20130211
  Receipt Date: 20130211
  Transmission Date: 20140127
  Serious: Yes (Other)
  Sender: FDA-Public Use
  Company Number: CHNY2013FI000569

PATIENT
  Age: 77 Year
  Sex: Male

DRUGS (2)
  1. OTRIVIN [Suspect]
     Indication: NASAL CONGESTION
     Dosage: UNK, UNK
     Dates: start: 2012, end: 2012
  2. NASOLIN [Suspect]
     Indication: NASAL CONGESTION
     Dosage: UNK, UNK
     Dates: start: 2012, end: 2012

REACTIONS (4)
  - Nasal congestion [Recovered/Resolved]
  - Condition aggravated [Recovered/Resolved]
  - Nasal obstruction [Recovered/Resolved]
  - Incorrect drug administration duration [Unknown]
